FAERS Safety Report 7484809-6 (Version None)
Quarter: 2011Q2

REPORT INFORMATION
  Report Type: 
  Country: None (occurrence: None)
  Receive Date: 20110517
  Receipt Date: 20110427
  Transmission Date: 20111010
  Serious: Yes (Other)
  Sender: FDA-Public Use
  Company Number: PHHY2011US01196

PATIENT
  Sex: Female

DRUGS (3)
  1. EXTAVIA [Suspect]
     Dosage: 0.25 MG, QOD
     Route: 058
     Dates: start: 20110101
  2. EXTAVIA [Suspect]
     Indication: MULTIPLE SCLEROSIS
     Dosage: 0.062 MG, QOD
     Route: 058
     Dates: start: 20101231
  3. DIURETICS [Concomitant]
     Indication: HYPERTENSION

REACTIONS (3)
  - ABDOMINAL DISCOMFORT [None]
  - INJECTION SITE ERYTHEMA [None]
  - WEIGHT INCREASED [None]
